FAERS Safety Report 6596911-1 (Version None)
Quarter: 2010Q1

REPORT INFORMATION
  Report Type: 
  Country: None (occurrence: None)
  Receive Date: 20100222
  Receipt Date: 20100222
  Transmission Date: 20100710
  Serious: Yes (Death)
  Sender: FDA-Public Use
  Company Number: None

PATIENT
  Age: 11 Year
  Sex: Male
  Weight: 36 kg

DRUGS (2)
  1. ONCASPAR [Suspect]
     Indication: T-CELL TYPE ACUTE LEUKAEMIA
     Dosage: 3025 UNITS ONCE IM
     Route: 030
     Dates: start: 20091228, end: 20091228
  2. METHOTREXATE [Concomitant]

REACTIONS (8)
  - APNOEA [None]
  - CEREBRAL HAEMORRHAGE [None]
  - CONVULSION [None]
  - MENTAL STATUS CHANGES [None]
  - NEUROLOGICAL DECOMPENSATION [None]
  - PUPIL FIXED [None]
  - SUPERIOR SAGITTAL SINUS THROMBOSIS [None]
  - WITHDRAWAL OF LIFE SUPPORT [None]
